FAERS Safety Report 7773914-2 (Version None)
Quarter: 2011Q3

REPORT INFORMATION
  Report Type: 
  Country: None (occurrence: None)
  Receive Date: 20110920
  Receipt Date: 20110904
  Transmission Date: 20111222
  Serious: Yes (Hospitalization)
  Sender: FDA-Public Use
  Company Number: 2011SP042438

PATIENT
  Age: 18 Year
  Sex: Female
  Weight: 37 kg

DRUGS (2)
  1. NUVARING [Suspect]
     Indication: CONTRACEPTION
     Dosage: VAG
     Route: 067
     Dates: start: 20110201
  2. NUVARING [Suspect]
     Indication: DYSMENORRHOEA
     Dosage: VAG
     Route: 067
     Dates: start: 20110201

REACTIONS (3)
  - DEVICE EXPULSION [None]
  - MENSTRUATION IRREGULAR [None]
  - APPENDICECTOMY [None]
